FAERS Safety Report 7186539-7 (Version None)
Quarter: 2010Q4

REPORT INFORMATION
  Report Type: 
  Country: None (occurrence: None)
  Receive Date: 20101222
  Receipt Date: 20101213
  Transmission Date: 20110411
  Serious: Yes (Hospitalization)
  Sender: FDA-Public Use
  Company Number: US-ELI_LILLY_AND_COMPANY-US201009003564

PATIENT
  Age: 63 Year
  Sex: Male

DRUGS (1)
  1. EFFIENT [Suspect]
     Indication: PERCUTANEOUS CORONARY INTERVENTION
     Dosage: 10 MG, UNKNOWN
     Route: 065
     Dates: start: 20100903

REACTIONS (2)
  - CHEST DISCOMFORT [None]
  - DRUG DOSE OMISSION [None]
